FAERS Safety Report 5228184-6 (Version None)
Quarter: 2007Q1

REPORT INFORMATION
  Report Type: 
  Country: None (occurrence: None)
  Receive Date: 20070130
  Receipt Date: 20070117
  Transmission Date: 20070707
  Serious: Yes (Hospitalization)
  Sender: FDA-Public Use
  Company Number: 2006BI016032

PATIENT
  Age: 53 Year
  Sex: Male

DRUGS (3)
  1. AVONEX [Suspect]
     Indication: MULTIPLE SCLEROSIS
     Dosage: 30 UG; QW; IM
     Route: 030
     Dates: start: 20060604, end: 20061201
  2. DEPAKOTE [Concomitant]
  3. TRILEPTAL [Concomitant]

REACTIONS (4)
  - CYST [None]
  - GALLBLADDER DISORDER [None]
  - GRAND MAL CONVULSION [None]
  - PETIT MAL EPILEPSY [None]
